FAERS Safety Report 8093703-1 (Version None)
Quarter: 2012Q1

REPORT INFORMATION
  Report Type: 
  Country: None (occurrence: None)
  Receive Date: 20120129
  Receipt Date: 20111026
  Transmission Date: 20120608
  Serious: No
  Sender: FDA-Public Use
  Company Number: US-ABBOTT-11P-163-0868711-00

PATIENT
  Age: 30 Year
  Sex: Female

DRUGS (12)
  1. BENTYL [Concomitant]
     Indication: ABDOMINAL RIGIDITY
     Dosage: 2 TABS - THREE TIMES A DAY AS NEEDED
  2. TRAMADOL HCL [Concomitant]
     Indication: ABDOMINAL PAIN
     Dosage: TWO TABS AS NEEDED
  3. DIAZEPAM [Concomitant]
     Indication: INSOMNIA
     Dosage: AT NIGHT
  4. ENTOCORT EC [Concomitant]
     Indication: PRODUCT USED FOR UNKNOWN INDICATION
     Dosage: DAILY
  5. PHENERGAN [Concomitant]
     Indication: NAUSEA
  6. PHENERGAN [Concomitant]
     Indication: VOMITING
  7. PREDNISONE TAB [Concomitant]
     Indication: PRODUCT USED FOR UNKNOWN INDICATION
  8. LEXAPRO [Concomitant]
     Indication: DEPRESSION
  9. VITAMIN B-12 [Concomitant]
     Indication: PRODUCT USED FOR UNKNOWN INDICATION
     Dosage: MONTHLY
     Route: 050
  10. PENTASA [Concomitant]
     Indication: PRODUCT USED FOR UNKNOWN INDICATION
     Dosage: TWO TABS - TWICE DAILY
  11. LEXAPRO [Concomitant]
     Indication: ANXIETY
  12. HUMIRA [Suspect]
     Indication: CROHN'S DISEASE
     Dates: start: 20110824

REACTIONS (2)
  - ALOPECIA [None]
  - INCREASED TENDENCY TO BRUISE [None]
